FAERS Safety Report 6027963-5 (Version None)
Quarter: 2008Q4

REPORT INFORMATION
  Report Type: 
  Country: None (occurrence: None)
  Receive Date: 20081230
  Receipt Date: 20081216
  Transmission Date: 20090506
  Serious: Yes (Other)
  Sender: FDA-Public Use
  Company Number: MOZO-1000137

PATIENT
  Age: 55 Year
  Sex: Male

DRUGS (1)
  1. PLERIXAFOR SOLUTION FOR SUBCUTANEOUS INJECTION [Suspect]
     Indication: HAEMATOPOIETIC STEM CELL MOBILISATION

REACTIONS (5)
  - CONFUSIONAL STATE [None]
  - EMOTIONAL DISTRESS [None]
  - INSOMNIA [None]
  - NIGHT SWEATS [None]
  - NIGHTMARE [None]
